FAERS Safety Report 6321963-3 (Version None)
Quarter: 2009Q3

REPORT INFORMATION
  Report Type: 
  Country: None (occurrence: None)
  Receive Date: 20090820
  Receipt Date: 20090731
  Transmission Date: 20100115
  Serious: Yes (Hospitalization)
  Sender: FDA-Public Use
  Company Number: DL2009477

PATIENT
  Age: 23 Year
  Sex: Female

DRUGS (3)
  1. MIFEPRISTONE TABLETS, 200 MG (DANCO LABS) [Suspect]
     Indication: ABORTION INDUCED
     Dosage: 200 MG, ORAL
     Route: 048
     Dates: start: 20090514
  2. MISOPROSTOL [Suspect]
     Dosage: 800 MCG, BUCCAL; 400 MCG BUCCAL 05/15/2009 OR 05/16/2009; 05/26/2009,05/27/2009
     Route: 002
     Dates: start: 20090515
  3. DOXYCYCLINE [Concomitant]

REACTIONS (4)
  - ABORTION INCOMPLETE [None]
  - INFECTION [None]
  - PELVIC PAIN [None]
  - PYREXIA [None]
